FAERS Safety Report 13841573 (Version 1)
Quarter: 2017Q3

REPORT INFORMATION
  Report Type: Spontaneous
  Country: US (occurrence: US)
  Receive Date: 20170807
  Receipt Date: 20170807
  Transmission Date: 20171127
  Serious: No
  Sender: FDA-Public Use
  Company Number: US-GALDERMA-US16005853

PATIENT
  Age: 24 Year
  Sex: Female

DRUGS (8)
  1. ADAPALENE GEL, 0.3% [Suspect]
     Active Substance: ADAPALENE
     Indication: ACNE
     Dosage: 0.3%
     Route: 061
     Dates: start: 201604, end: 20160809
  2. ADAPALENE GEL, 0.3% [Suspect]
     Active Substance: ADAPALENE
     Indication: SEBORRHOEA
  3. UNKNOWN SUNBLOCK [Concomitant]
  4. UNKNOWN FACE WASH [Concomitant]
  5. BIOTIN [Concomitant]
     Active Substance: BIOTIN
  6. VITAMIN B12 [Concomitant]
     Active Substance: CYANOCOBALAMIN
  7. VITAMIN B3 [Concomitant]
     Active Substance: NIACIN
  8. MULTIVITAMIN [Concomitant]
     Active Substance: VITAMINS

REACTIONS (4)
  - Erythema [Recovered/Resolved]
  - Skin irritation [Not Recovered/Not Resolved]
  - Expired product administered [Recovered/Resolved]
  - Dry skin [Not Recovered/Not Resolved]

NARRATIVE: CASE EVENT DATE: 201601
